FAERS Safety Report 23615761 (Version 1)
Quarter: 2024Q1

REPORT INFORMATION
  Report Type: Spontaneous
  Country: FR (occurrence: FR)
  Receive Date: 20240311
  Receipt Date: 20240311
  Transmission Date: 20240410
  Serious: Yes (Hospitalization)
  Sender: FDA-Public Use
  Company Number: None

PATIENT
  Age: 80 Year
  Sex: Male
  Weight: 70 kg

DRUGS (5)
  1. BENDAMUSTINE [Suspect]
     Active Substance: BENDAMUSTINE
     Indication: Mantle cell lymphoma
     Dosage: 175 MG, QD
     Route: 042
     Dates: start: 20240201, end: 20240202
  2. LENOGRASTIM [Suspect]
     Active Substance: LENOGRASTIM
     Indication: Prophylaxis
     Dosage: 34 MILLION IU, POWDER AND SOLVENT IN PRE-FILLED SYRINGE FOR SOLUTION OR FOR [SIC], 1 DF, QD
     Route: 058
     Dates: start: 20240205, end: 20240210
  3. MABTHERA [Suspect]
     Active Substance: RITUXIMAB
     Indication: Mantle cell lymphoma
     Dosage: MAMMAL/CHOCELLS, 730 MG, TOTAL
     Route: 042
     Dates: start: 20240201, end: 20240201
  4. PRIMPERAN [Suspect]
     Active Substance: METOCLOPRAMIDE HYDROCHLORIDE
     Indication: Nausea
     Dosage: 1 DF, AS NECESSARY (START DATE:FEB-2024 AND STOP DATE: FEB-2024)
     Route: 048
  5. BACTRIM [Suspect]
     Active Substance: SULFAMETHOXAZOLE\TRIMETHOPRIM
     Indication: Prophylaxis
     Dosage: 1 DF, BID (START DATE: JAN-2024)
     Route: 048
     Dates: end: 20240211

REACTIONS (1)
  - Eczema [Recovering/Resolving]
